FAERS Safety Report 9397999 (Version 1)
Quarter: 2013Q3

REPORT INFORMATION
  Report Type: Report from Study
  Country: AR (occurrence: AR)
  Receive Date: 20130712
  Receipt Date: 20130712
  Transmission Date: 20140515
  Serious: Yes (Hospitalization)
  Sender: FDA-Public Use
  Company Number: PHHY2013AR074276

PATIENT
  Age: 93 Year
  Sex: Female

DRUGS (1)
  1. ACLASTA [Suspect]
     Indication: BONE DISORDER
     Dosage: UNK UKN, ANNUAL
     Route: 042
     Dates: start: 2008

REACTIONS (2)
  - Cardiac failure [Recovered/Resolved]
  - Malaise [Recovered/Resolved]
